FAERS Safety Report 15399329 (Version 15)
Quarter: 2022Q2

REPORT INFORMATION
  Report Type: Spontaneous
  Country: US (occurrence: US)
  Receive Date: 20180918
  Receipt Date: 20220408
  Transmission Date: 20220720
  Serious: Yes (Hospitalization)
  Sender: FDA-Public Use
  Company Number: US-VIFOR (INTERNATIONAL) INC.-VIT-2018-09079

PATIENT
  Age: 71 Year
  Sex: Female

DRUGS (26)
  1. VELTASSA [Suspect]
     Active Substance: PATIROMER
     Indication: Hyperkalaemia
     Route: 048
     Dates: start: 20180726, end: 201809
  2. VELTASSA [Suspect]
     Active Substance: PATIROMER
     Route: 048
     Dates: start: 20181102
  3. VELTASSA [Suspect]
     Active Substance: PATIROMER
     Route: 048
     Dates: start: 20190304
  4. VELTASSA [Suspect]
     Active Substance: PATIROMER
     Route: 048
     Dates: start: 201908, end: 2019
  5. VELTASSA [Suspect]
     Active Substance: PATIROMER
     Route: 048
     Dates: start: 201810
  6. VELTASSA [Suspect]
     Active Substance: PATIROMER
     Route: 048
  7. VALSARTAN [Concomitant]
     Active Substance: VALSARTAN
  8. RENVELA [Concomitant]
     Active Substance: SEVELAMER CARBONATE
  9. ELIQUIS [Concomitant]
     Active Substance: APIXABAN
  10. OMEPRAZOLE [Concomitant]
     Active Substance: OMEPRAZOLE
  11. METOPROLOL TARTRATE [Concomitant]
     Active Substance: METOPROLOL TARTRATE
  12. ISOSORBIDE DINITRATE [Concomitant]
     Active Substance: ISOSORBIDE DINITRATE
  13. HYDRALAZINE HCL [Concomitant]
     Active Substance: HYDRALAZINE HYDROCHLORIDE
  14. GUAIFENESIN [Concomitant]
     Active Substance: GUAIFENESIN
  15. DIPHENHYDRAMINE HYDROCHLORIDE [Concomitant]
     Active Substance: DIPHENHYDRAMINE HYDROCHLORIDE
  16. DIALYVITE [Concomitant]
     Active Substance: ASCORBIC ACID\BIOTIN\CALCIUM PANTOTHENATE\COBALAMIN\FOLIC ACID\NIACINAMIDE\PYRIDOXINE HYDROCHLORIDE\
  17. CEFDINIR [Concomitant]
     Active Substance: CEFDINIR
  18. CALCIUM ACETATE [Concomitant]
     Active Substance: CALCIUM ACETATE
  19. ASPIRIN [Concomitant]
     Active Substance: ASPIRIN
  20. AMLODIPINE BESYLATE [Concomitant]
     Active Substance: AMLODIPINE BESYLATE
  21. ACETAMINOPHEN [Concomitant]
     Active Substance: ACETAMINOPHEN
  22. FERROUS SULFATE [Concomitant]
     Active Substance: FERROUS SULFATE
  23. RENAL [Concomitant]
  24. VITAMINS [Concomitant]
     Active Substance: VITAMINS
  25. ALBUTEROL SULFATE [Concomitant]
     Active Substance: ALBUTEROL SULFATE
     Indication: Chronic obstructive pulmonary disease
  26. TYLENOL [Concomitant]
     Active Substance: ACETAMINOPHEN

REACTIONS (13)
  - Blood potassium increased [Unknown]
  - Off label use [Unknown]
  - Product dose omission issue [Unknown]
  - Hospitalisation [Unknown]
  - Dyspnoea [Unknown]
  - Bacterial infection [Unknown]
  - Blood potassium increased [Unknown]
  - Asthenia [Unknown]
  - Ill-defined disorder [Unknown]
  - Pneumonia [Unknown]
  - Respiratory disorder [Unknown]
  - Nausea [Unknown]
  - Vomiting [Unknown]

NARRATIVE: CASE EVENT DATE: 20180922
